FAERS Safety Report 9780889 (Version 1)
Quarter: 2013Q4

REPORT INFORMATION
  Report Type: Spontaneous
  Country: IT (occurrence: IT)
  Receive Date: 20131224
  Receipt Date: 20131224
  Transmission Date: 20140711
  Serious: Yes (Other)
  Sender: FDA-Public Use
  Company Number: IT-DRREDDYS-USA/ITL/13/0036599

PATIENT
  Age: 72 Year
  Sex: Male

DRUGS (13)
  1. QUETIAPINE [Suspect]
     Indication: COGNITIVE DISORDER
     Route: 065
  2. QUETIAPINE [Interacting]
     Indication: ABNORMAL BEHAVIOUR
  3. ATORVASTATIN [Interacting]
     Indication: PRODUCT USED FOR UNKNOWN INDICATION
     Route: 065
  4. SERTRALINE [Interacting]
     Indication: COGNITIVE DISORDER
     Route: 065
  5. SERTRALINE [Interacting]
     Indication: ABNORMAL BEHAVIOUR
  6. RANOLAZINE [Interacting]
     Indication: ANGINA PECTORIS
     Route: 065
  7. NITROGLYCERIN TRANSDERMAL PATCH 0.1MG/HR [Interacting]
     Indication: PRODUCT USED FOR UNKNOWN INDICATION
     Route: 062
  8. ACETYLSALYCILATE [Interacting]
     Indication: PRODUCT USED FOR UNKNOWN INDICATION
     Route: 065
  9. VALSARTAN [Interacting]
     Indication: PRODUCT USED FOR UNKNOWN INDICATION
     Route: 065
  10. BISOPROLOL [Interacting]
     Indication: PRODUCT USED FOR UNKNOWN INDICATION
     Route: 065
  11. ALLOPURINOL [Interacting]
     Indication: PRODUCT USED FOR UNKNOWN INDICATION
     Route: 065
  12. OMEPRAZOLE [Interacting]
     Indication: PRODUCT USED FOR UNKNOWN INDICATION
     Route: 065
  13. FUROSEMIDE [Interacting]
     Indication: PRODUCT USED FOR UNKNOWN INDICATION
     Route: 065

REACTIONS (2)
  - Rhabdomyolysis [Recovered/Resolved]
  - Drug interaction [Unknown]
